FAERS Safety Report 9506022 (Version 1)
Quarter: 2013Q1

REPORT INFORMATION
  Report Type: Spontaneous
  Country: US (occurrence: None)
  Receive Date: 20130305
  Receipt Date: 20130305
  Transmission Date: 20140127
  Serious: Yes (Disabling)
  Sender: FDA-Public Use
  Company Number: 163-21880-12050256

PATIENT
  Age: 66 Year
  Sex: Male
  Weight: 86.18 kg

DRUGS (5)
  1. REVLIMID (LENALIDOMIDE) (25 MILLIGRAM, CAPSULES) [Suspect]
     Indication: PLASMA CELL MYELOMA
     Route: 048
     Dates: start: 201006
  2. ACYCLOVIR [Concomitant]
  3. ASA (ACETYLSALICYLIC ACID) [Concomitant]
  4. MULTIVITAMINS [Concomitant]
  5. TURMERIC [Concomitant]

REACTIONS (5)
  - Dyspnoea [None]
  - Night sweats [None]
  - Pyrexia [None]
  - Weight decreased [None]
  - White blood cell count decreased [None]
